FAERS Safety Report 7341195-X (Version None)
Quarter: 2011Q1

REPORT INFORMATION
  Report Type: 
  Country: None (occurrence: None)
  Receive Date: 20110309
  Receipt Date: 20110228
  Transmission Date: 20110831
  Serious: Yes (Other)
  Sender: FDA-Public Use
  Company Number: D0070448A

PATIENT
  Sex: Female

DRUGS (2)
  1. VALTREX [Suspect]
     Route: 065
  2. ZOVIRAX [Suspect]
     Route: 065
     Dates: start: 20110225

REACTIONS (3)
  - NEURALGIA [None]
  - VISUAL ACUITY REDUCED [None]
  - OCULAR HYPERAEMIA [None]
